FAERS Safety Report 4376208-0 (Version None)
Quarter: 2004Q2

REPORT INFORMATION
  Report Type: 
  Country: None (occurrence: None)
  Receive Date: 20040610
  Receipt Date: 20040610
  Transmission Date: 20050107
  Serious: Yes (Hospitalization)
  Sender: FDA-Public Use
  Company Number: None

PATIENT
  Age: 72 Year
  Sex: Female
  Weight: 68.0396 kg

DRUGS (8)
  1. INTEGRILIN [Suspect]
     Indication: ANTIPLATELET THERAPY
     Dosage: 2 (6.2 ML BOLUSES) 5.5ML/HR IV
     Route: 042
     Dates: start: 20040602, end: 20040605
  2. NITROGLYCERIN [Concomitant]
  3. VERAPAMIL [Concomitant]
  4. MORPHINE [Concomitant]
  5. MIDAZOLAM HCL [Concomitant]
  6. ASPIRIN [Concomitant]
  7. CLOPIODREL [Concomitant]
  8. PEPCID [Concomitant]

REACTIONS (3)
  - BLOOD CREATINE PHOSPHOKINASE INCREASED [None]
  - BLOOD CREATINE PHOSPHOKINASE MB INCREASED [None]
  - POST PROCEDURAL COMPLICATION [None]
